FAERS Safety Report 13826091 (Version 2)
Quarter: 2018Q2

REPORT INFORMATION
  Report Type: Spontaneous
  Country: US (occurrence: US)
  Receive Date: 20170802
  Receipt Date: 20180530
  Transmission Date: 20180711
  Serious: Yes (Life-Threatening, Hospitalization, Other)
  Sender: FDA-Public Use
  Company Number: PHHY2017US111894

PATIENT
  Age: 29 Year
  Sex: Female

DRUGS (11)
  1. IVABRADINE [Interacting]
     Active Substance: IVABRADINE
     Indication: CONGESTIVE CARDIOMYOPATHY
  2. SPIRONOLACTONE. [Concomitant]
     Active Substance: SPIRONOLACTONE
     Indication: PRODUCT USED FOR UNKNOWN INDICATION
     Route: 065
  3. SPIRONOLACTONE. [Concomitant]
     Active Substance: SPIRONOLACTONE
     Indication: CONGESTIVE CARDIOMYOPATHY
  4. LISINOPRIL. [Concomitant]
     Active Substance: LISINOPRIL
     Indication: CONGESTIVE CARDIOMYOPATHY
  5. METOPROLOL. [Suspect]
     Active Substance: METOPROLOL
     Indication: PRODUCT USED FOR UNKNOWN INDICATION
     Route: 065
  6. LISINOPRIL. [Concomitant]
     Active Substance: LISINOPRIL
     Indication: PRODUCT USED FOR UNKNOWN INDICATION
     Route: 065
  7. IVABRADINE [Interacting]
     Active Substance: IVABRADINE
     Indication: ANGINA PECTORIS
  8. METOPROLOL. [Interacting]
     Active Substance: METOPROLOL
     Indication: CONGESTIVE CARDIOMYOPATHY
     Route: 065
  9. FUROSEMIDE. [Interacting]
     Active Substance: FUROSEMIDE
     Indication: PRODUCT USED FOR UNKNOWN INDICATION
     Route: 065
  10. IVABRADINE [Interacting]
     Active Substance: IVABRADINE
     Indication: PRODUCT USED FOR UNKNOWN INDICATION
     Route: 065
  11. IVABRADINE [Interacting]
     Active Substance: IVABRADINE
     Indication: SINUS BRADYCARDIA

REACTIONS (10)
  - Dyspnoea [Unknown]
  - Chest discomfort [Unknown]
  - Cardio-respiratory arrest [Unknown]
  - Ventricular fibrillation [Unknown]
  - Electrocardiogram QT prolonged [Unknown]
  - Myocardial necrosis marker increased [Unknown]
  - Torsade de pointes [Unknown]
  - Syncope [Unknown]
  - Drug interaction [Unknown]
  - Ventricular tachycardia [Unknown]
